FAERS Safety Report 8533789-0 (Version None)
Quarter: 2012Q3

REPORT INFORMATION
  Report Type: 
  Country: None (occurrence: None)
  Receive Date: 20120711
  Receipt Date: 20110202
  Transmission Date: 20120928
  Serious: No
  Sender: FDA-Public Use
  Company Number: PP11-004

PATIENT
  Sex: Female

DRUGS (2)
  1. ALLERGENIC EXTRACTS - PATIENT TREATMENT SEDT [Suspect]
  2. ALLERGENIC EXTRACTS - PATIENT TREATMENT SET [Suspect]
     Indication: RHINITIS ALLERGIC

REACTIONS (1)
  - URTICARIA [None]
